FAERS Safety Report 20602326 (Version 1)
Quarter: 2022Q1

REPORT INFORMATION
  Report Type: Spontaneous
  Country: IN (occurrence: IN)
  Receive Date: 20220316
  Receipt Date: 20220316
  Transmission Date: 20220423
  Serious: Yes (Other)
  Sender: FDA-Public Use
  Company Number: IN-PFIZER INC-202200368458

PATIENT
  Age: 21 Year
  Sex: Male

DRUGS (1)
  1. VORICONAZOLE [Suspect]
     Active Substance: VORICONAZOLE
     Dosage: UNK
     Dates: start: 20220123

REACTIONS (2)
  - Sinus operation [Unknown]
  - Fungal infection [Unknown]

NARRATIVE: CASE EVENT DATE: 20220211
